FAERS Safety Report 16007607 (Version 1)
Quarter: 2019Q1

REPORT INFORMATION
  Report Type: Spontaneous
  Country: US (occurrence: US)
  Receive Date: 20190226
  Receipt Date: 20190226
  Transmission Date: 20190418
  Serious: No
  Sender: FDA-Public Use
  Company Number: US-IGSA-SR10007566

PATIENT
  Age: 53 Year
  Sex: Female
  Weight: 80 kg

DRUGS (18)
  1. VANCOCIN [Concomitant]
     Active Substance: VANCOMYCIN HYDROCHLORIDE
  2. GABAPENTIN. [Concomitant]
     Active Substance: GABAPENTIN
  3. GEODON [Concomitant]
     Active Substance: ZIPRASIDONE HYDROCHLORIDE\ZIPRASIDONE MESYLATE
  4. PROLASTIN-C LIQUID [Suspect]
     Active Substance: .ALPHA.1-PROTEINASE INHIBITOR HUMAN
     Indication: ALPHA-1 ANTI-TRYPSIN DEFICIENCY
     Dosage: 4800 MG, Q.WK.
     Route: 042
     Dates: start: 20180330
  5. TEMAZEPAM. [Concomitant]
     Active Substance: TEMAZEPAM
  6. PEPCID AC [Concomitant]
     Active Substance: FAMOTIDINE
  7. DULCOLAX BALANCE [Concomitant]
     Active Substance: POLYETHYLENE GLYCOL 3350
  8. LASIX [Concomitant]
     Active Substance: FUROSEMIDE
  9. PREDNISONE. [Concomitant]
     Active Substance: PREDNISONE
  10. SPIRONOLACTONE. [Concomitant]
     Active Substance: SPIRONOLACTONE
  11. LIDODERM [Concomitant]
     Active Substance: LIDOCAINE
  12. DEPAKENE [Concomitant]
     Active Substance: VALPROIC ACID
  13. METOPROLOL TARTRATE. [Concomitant]
     Active Substance: METOPROLOL TARTRATE
  14. VENLAFAXINE HCL PHYS TOTAL CARE [Concomitant]
  15. LACTULOSE. [Concomitant]
     Active Substance: LACTULOSE
  16. MEROPENEM. [Concomitant]
     Active Substance: MEROPENEM
  17. BACLOFEN. [Concomitant]
     Active Substance: BACLOFEN
  18. FENTANYL. [Concomitant]
     Active Substance: FENTANYL

REACTIONS (2)
  - Fatigue [Not Recovered/Not Resolved]
  - Somnolence [Not Recovered/Not Resolved]

NARRATIVE: CASE EVENT DATE: 20180419
